FAERS Safety Report 6437771-9 (Version None)
Quarter: 2009Q4

REPORT INFORMATION
  Report Type: 
  Country: None (occurrence: None)
  Receive Date: 20091109
  Receipt Date: 20090327
  Transmission Date: 20100525
  Serious: Yes (Other)
  Sender: FDA-Public Use
  Company Number: 09-049

PATIENT
  Age: 62 Year
  Sex: Female

DRUGS (4)
  1. CARISOPRODOL [Suspect]
     Indication: BACK PAIN
     Dosage: ONE P.O. 5X/D/FIVE TO SIX YEARS
  2. CARISOPRODOL [Suspect]
     Indication: PAIN
     Dosage: ONE P.O. 5X/D/FIVE TO SIX YEARS
  3. LORTAB [Concomitant]
  4. IBUPROFEN [Concomitant]

REACTIONS (1)
  - NO THERAPEUTIC RESPONSE [None]
